FAERS Safety Report 6511402-1 (Version None)
Quarter: 2009Q4

REPORT INFORMATION
  Report Type: 
  Country: None (occurrence: None)
  Receive Date: 20091222
  Receipt Date: 20090311
  Transmission Date: 20100525
  Serious: No
  Sender: FDA-Public Use
  Company Number: US-ASTRAZENECA-2009UW06432

PATIENT
  Age: 82 Year
  Sex: Female
  Weight: 71.2 kg

DRUGS (6)
  1. CRESTOR [Suspect]
     Route: 048
     Dates: start: 20090101
  2. ACTONEL [Concomitant]
  3. SYNTHROID [Concomitant]
  4. VITAMINS [Concomitant]
  5. CALCIUM [Concomitant]
  6. VITAMIN D [Concomitant]

REACTIONS (2)
  - ABDOMINAL DISCOMFORT [None]
  - NASOPHARYNGITIS [None]
